FAERS Safety Report 7779832-8 (Version None)
Quarter: 2011Q3

REPORT INFORMATION
  Report Type: 
  Country: None (occurrence: None)
  Receive Date: 20110927
  Receipt Date: 20110922
  Transmission Date: 20111222
  Serious: Yes (Hospitalization)
  Sender: FDA-Public Use
  Company Number: CH-PFIZER INC-2011124365

PATIENT
  Age: 63 Year
  Sex: Female
  Weight: 56 kg

DRUGS (10)
  1. CYTOSAR-U [Suspect]
     Indication: ACUTE MYELOID LEUKAEMIA
     Dosage: 1000 MG/M2, 2X/DAY
     Route: 041
     Dates: start: 20110504, end: 20110507
  2. TORASEMIDE [Concomitant]
     Indication: OEDEMA
     Dosage: 10 MG, 1X/DAY
     Route: 048
     Dates: start: 20110509, end: 20110513
  3. IDARUBICIN HYDROCHLORIDE [Interacting]
     Indication: ACUTE MYELOID LEUKAEMIA
     Dosage: 12 MG/M2, 1X/DAY
     Route: 041
     Dates: start: 20110507, end: 20110507
  4. SPRYCEL [Interacting]
     Indication: ACUTE MYELOID LEUKAEMIA
     Dosage: 100 MG, 1X/DAY
     Route: 048
     Dates: start: 20110311, end: 20110509
  5. PRIMPERAN TAB [Concomitant]
     Indication: NAUSEA
     Dosage: 10 MG, AS NEEDED
     Route: 040
     Dates: start: 20110503
  6. LORAZEPAM [Concomitant]
     Indication: ANXIETY DISORDER
     Dosage: 1 MG, 1X/DAY
     Route: 060
     Dates: start: 20110503
  7. IDARUBICIN HYDROCHLORIDE [Interacting]
     Dosage: UNK
     Dates: start: 20110513
  8. PRIMPERAN TAB [Concomitant]
     Indication: VOMITING
  9. LIQUEMINE [Concomitant]
     Indication: PAIN
     Dosage: 5000 IU, 2X/DAY
     Route: 058
     Dates: start: 20110509, end: 20110513
  10. ACETAMINOPHEN [Concomitant]
     Indication: PAIN
     Dosage: 500 MG, AS NEEDED
     Route: 041
     Dates: start: 20110509

REACTIONS (8)
  - ACUTE PULMONARY OEDEMA [None]
  - AGRANULOCYTOSIS [None]
  - NEUROTOXICITY [None]
  - GENERALISED OEDEMA [None]
  - DRUG INTERACTION [None]
  - CEREBELLAR ATAXIA [None]
  - DYSARTHRIA [None]
  - CEREBELLAR SYNDROME [None]
